FAERS Safety Report 20619040 (Version 1)
Quarter: 2022Q1

REPORT INFORMATION
  Report Type: Spontaneous
  Country: FR (occurrence: FR)
  Receive Date: 20220322
  Receipt Date: 20220322
  Transmission Date: 20220423
  Serious: Yes (Congenital Anomaly, Other)
  Sender: FDA-Public Use
  Company Number: FR-ABBVIE-22K-056-4324460-00

PATIENT
  Sex: Male
  Weight: 3.32 kg

DRUGS (2)
  1. VALPROATE SODIUM [Suspect]
     Active Substance: VALPROATE SODIUM
     Indication: Product used for unknown indication
     Route: 064
  2. FOLIC ACID [Concomitant]
     Active Substance: FOLIC ACID
     Indication: Product used for unknown indication

REACTIONS (15)
  - Autism spectrum disorder [Unknown]
  - Spine malformation [Unknown]
  - Speech disorder developmental [Unknown]
  - Learning disorder [Unknown]
  - Developmental delay [Unknown]
  - Behaviour disorder [Unknown]
  - Disturbance in attention [Unknown]
  - Eating disorder [Unknown]
  - Mental disorder [Unknown]
  - Epilepsy [Unknown]
  - Enuresis [Unknown]
  - Ear, nose and throat disorder [Unknown]
  - Ear, nose and throat disorder [Unknown]
  - Visual impairment [Unknown]
  - Foetal exposure during pregnancy [Unknown]

NARRATIVE: CASE EVENT DATE: 20041203
